FAERS Safety Report 7158770-8 (Version None)
Quarter: 2010Q4

REPORT INFORMATION
  Report Type: 
  Country: None (occurrence: None)
  Receive Date: 20101214
  Receipt Date: 20101202
  Transmission Date: 20110411
  Serious: Yes (Other)
  Sender: FDA-Public Use
  Company Number: PHHY2010CA82703

PATIENT
  Sex: Female

DRUGS (2)
  1. ACLASTA [Suspect]
     Dosage: UNK
     Dates: start: 20080101
  2. ACLASTA [Suspect]
     Dosage: UNK
     Dates: start: 20090101

REACTIONS (5)
  - INFLUENZA [None]
  - LUMBAR VERTEBRAL FRACTURE [None]
  - PAIN [None]
  - PATHOLOGICAL FRACTURE [None]
  - SPINAL COMPRESSION FRACTURE [None]
